FAERS Safety Report 7244052-2 (Version None)
Quarter: 2011Q1

REPORT INFORMATION
  Report Type: 
  Country: None (occurrence: None)
  Receive Date: 20110125
  Receipt Date: 20110119
  Transmission Date: 20110831
  Serious: Yes (Hospitalization, Other)
  Sender: FDA-Public Use
  Company Number: US-ABBOTT-11P-163-0699704-00

PATIENT
  Sex: Female

DRUGS (1)
  1. HUMIRA [Suspect]
     Indication: CROHN'S DISEASE
     Route: 058
     Dates: start: 20101004

REACTIONS (4)
  - STREPTOCOCCAL INFECTION [None]
  - APPARENT DEATH [None]
  - MEDICAL INDUCTION OF COMA [None]
  - PNEUMONIA [None]
